FAERS Safety Report 5953293-3 (Version None)
Quarter: 2008Q4

REPORT INFORMATION
  Report Type: 
  Country: None (occurrence: None)
  Receive Date: 20081114
  Receipt Date: 20081112
  Transmission Date: 20090506
  Serious: Yes (Death, Other)
  Sender: FDA-Public Use
  Company Number: PHHY2008JP28188

PATIENT
  Age: 13 Year
  Sex: Female

DRUGS (1)
  1. CYCLOSPORINE [Suspect]
     Indication: CORD BLOOD TRANSPLANT THERAPY
     Dosage: UNK
     Route: 065
     Dates: start: 20060101

REACTIONS (4)
  - ACUTE MYELOID LEUKAEMIA [None]
  - CYTOMEGALOVIRUS INFECTION [None]
  - PANCREATITIS [None]
  - TOXIC ENCEPHALOPATHY [None]
